FAERS Safety Report 8868779 (Version 1)
Quarter: 2012Q4

REPORT INFORMATION
  Report Type: 
  Country: US (occurrence: US)
  Receive Date: 20121024
  Receipt Date: 20121024
  Transmission Date: 20130627
  Serious: Yes (Hospitalization, Other)
  Sender: FDA-Public Use
  Company Number: US-SHIRE-ALL1-2012-04919

PATIENT
  Sex: Male

DRUGS (1)
  1. ADDERALL XR [Suspect]
     Indication: CONDUCT DISORDER
     Dosage: UNK, Unknown
     Route: 048

REACTIONS (3)
  - Suicidal behaviour [Unknown]
  - Hallucinations, mixed [Unknown]
  - Off label use [Unknown]
